FAERS Safety Report 7386541-6 (Version None)
Quarter: 2011Q1

REPORT INFORMATION
  Report Type: 
  Country: None (occurrence: None)
  Receive Date: 20110329
  Receipt Date: 20110329
  Transmission Date: 20110831
  Serious: Yes (Hospitalization)
  Sender: FDA-Public Use
  Company Number: None

PATIENT
  Age: 68 Year
  Sex: Female
  Weight: 67.1324 kg

DRUGS (1)
  1. GAVILYTE-N PEG-3350 GAVIS PHARMACEUTICALS [Suspect]
     Indication: COLITIS ULCERATIVE
     Dosage: 3 LITERS

REACTIONS (1)
  - ATRIAL FIBRILLATION [None]
